FAERS Safety Report 17401017 (Version 1)
Quarter: 2020Q1

REPORT INFORMATION
  Report Type: Spontaneous
  Country: US (occurrence: US)
  Receive Date: 20200211
  Receipt Date: 20200211
  Transmission Date: 20200409
  Serious: Yes (Other)
  Sender: FDA-Public Use
  Company Number: US-HIKMA PHARMACEUTICALS USA INC.-US-H14001-20-00501

PATIENT
  Age: 64 Year
  Sex: Female
  Weight: 72.57 kg

DRUGS (2)
  1. PREMARIN [Suspect]
     Active Substance: ESTROGENS, CONJUGATED
     Indication: PRODUCT USED FOR UNKNOWN INDICATION
     Route: 065
  2. METHADONE [Suspect]
     Active Substance: METHADONE HYDROCHLORIDE
     Indication: COMPLEX REGIONAL PAIN SYNDROME
     Route: 065
     Dates: end: 20181224

REACTIONS (6)
  - Eyelid ptosis [Recovered/Resolved]
  - Drug withdrawal syndrome [Recovered/Resolved]
  - Vein collapse [Recovered/Resolved]
  - Dehydration [Recovered/Resolved]
  - Hyperhidrosis [Recovered/Resolved]
  - Skin odour abnormal [Recovered/Resolved]

NARRATIVE: CASE EVENT DATE: 20181226
